FAERS Safety Report 4476629-1 (Version None)
Quarter: 2004Q4

REPORT INFORMATION
  Report Type: 
  Country: None (occurrence: None)
  Receive Date: 20041015
  Receipt Date: 20041015
  Transmission Date: 20050328
  Serious: Yes (Hospitalization)
  Sender: FDA-Public Use
  Company Number: None

PATIENT
  Sex: Female
  Weight: 50.4 kg

DRUGS (15)
  1. RITUXIMAB [Suspect]
     Indication: CHRONIC LYMPHOCYTIC LEUKAEMIA
     Dosage: 700MG  DAY 1 + D14  INTRAVENOU
     Route: 042
     Dates: start: 20040824, end: 20041004
  2. FLUDARA [Suspect]
     Dosage: DAYS 1,2,3  INTRAVENOU
     Route: 042
     Dates: start: 20040825, end: 20040923
  3. CYCLOPHOSPHAMIDE [Suspect]
     Dosage: 150MG/M2 (220 MG TOTAL DOSE) DAYS 1,2,3, INTRAVENOU
     Route: 042
     Dates: start: 20040825, end: 20040923
  4. NORVASC [Concomitant]
  5. FENTANYL [Concomitant]
  6. CELEBREX [Concomitant]
  7. COLACE [Concomitant]
  8. ACETAMINAPHEN [Concomitant]
  9. RITUXIMAB PREMEDIPHENHYDRAMINE [Concomitant]
  10. RITUXIMAB PREMED [Concomitant]
  11. DOLASETRON [Concomitant]
  12. TRIMETHOPRIM-SULFAMETHOXAZOLE [Concomitant]
  13. ACYCLOVIR [Concomitant]
  14. PEGFILGRASTIM [Concomitant]
  15. COMPAZINE [Concomitant]

REACTIONS (9)
  - ANAEMIA [None]
  - CHILLS [None]
  - COUGH [None]
  - DEHYDRATION [None]
  - FATIGUE [None]
  - NAUSEA [None]
  - NEUTROPENIA [None]
  - PYREXIA [None]
  - THROMBOCYTOPENIA [None]
